FAERS Safety Report 4951719-5 (Version None)
Quarter: 2006Q1

REPORT INFORMATION
  Report Type: 
  Country: None (occurrence: None)
  Receive Date: 20060323
  Receipt Date: 20060320
  Transmission Date: 20060701
  Serious: Yes (Other)
  Sender: FDA-Public Use
  Company Number: US-GLAXOSMITHKLINE-A0598224A

PATIENT
  Sex: Female

DRUGS (1)
  1. IMITREX [Suspect]
     Indication: MIGRAINE
     Dosage: 6MCG AS REQUIRED
     Route: 058
     Dates: start: 20060301

REACTIONS (2)
  - ARTERIOSPASM CORONARY [None]
  - OXYGEN SATURATION DECREASED [None]
